FAERS Safety Report 6354387-3 (Version None)
Quarter: 2009Q3

REPORT INFORMATION
  Report Type: 
  Country: None (occurrence: None)
  Receive Date: 20090914
  Receipt Date: 20090904
  Transmission Date: 20100115
  Serious: Yes (Hospitalization)
  Sender: FDA-Public Use
  Company Number: US-BIOGENIDEC-2009BI021389

PATIENT
  Age: 53 Year
  Sex: Female
  Weight: 70 kg

DRUGS (4)
  1. AVONEX [Suspect]
     Indication: MULTIPLE SCLEROSIS
     Route: 030
     Dates: start: 19980101, end: 20030101
  2. AVONEX [Suspect]
     Route: 030
     Dates: start: 20030101, end: 20040101
  3. AVONEX [Suspect]
     Route: 030
     Dates: start: 20040101
  4. STEROIDS (NOS) [Concomitant]

REACTIONS (6)
  - DIABETES MELLITUS [None]
  - HYPERGLYCAEMIA [None]
  - INFLUENZA LIKE ILLNESS [None]
  - MULTIPLE SCLEROSIS RELAPSE [None]
  - NASOPHARYNGITIS [None]
  - STRESS [None]
